FAERS Safety Report 4986657-5 (Version None)
Quarter: 2006Q2

REPORT INFORMATION
  Report Type: 
  Country: None (occurrence: None)
  Receive Date: 20060428
  Receipt Date: 20050516
  Transmission Date: 20061013
  Serious: Yes (Congenital Anomaly)
  Sender: FDA-Public Use
  Company Number: US-MERCK-0505USA01948B1

PATIENT
  Age: 0 Day
  Sex: Male
  Weight: 3 kg

DRUGS (11)
  1. SINGULAIR [Suspect]
     Indication: ASTHMA
     Dates: start: 20000101, end: 20050601
  2. SINGULAIR [Suspect]
     Indication: HYPERSENSITIVITY
     Dates: start: 20000101, end: 20050601
  3. PREDNISONE [Concomitant]
     Dates: start: 20020101
  4. ENBREL [Concomitant]
     Dates: start: 20020201
  5. PULMICORT [Concomitant]
  6. ALBUTEROL [Concomitant]
  7. DARVOCET [Concomitant]
  8. ACIPHEX [Concomitant]
  9. NATAFORT PRENATAL VITAMIN [Concomitant]
  10. ARAVA [Concomitant]
  11. [THERAPY UNSPECIFIED] [Concomitant]

REACTIONS (8)
  - CONGENITAL CYSTIC KIDNEY DISEASE [None]
  - CONGENITAL HYDRONEPHROSIS [None]
  - CONGENITAL TONGUE ANOMALY [None]
  - DRUG EXPOSURE DURING PREGNANCY [None]
  - HYDROCELE [None]
  - HYDRONEPHROSIS [None]
  - NEONATAL DISORDER [None]
  - PHIMOSIS [None]
